FAERS Safety Report 8510169-5 (Version None)
Quarter: 2012Q3

REPORT INFORMATION
  Report Type: 
  Country: None (occurrence: None)
  Receive Date: 20120713
  Receipt Date: 20120702
  Transmission Date: 20120928
  Serious: Yes (Other)
  Sender: FDA-Public Use
  Company Number: US-ALET-2012-11581

PATIENT
  Sex: Female

DRUGS (2)
  1. ALENDRONATE SODIUM [Suspect]
     Indication: PRODUCT USED FOR UNKNOWN INDICATION
     Dosage: ^AS PRESCRIBED AND IN A FORESEEABLE MANNER^
     Route: 048
  2. FOSAMAX [Suspect]
     Indication: PRODUCT USED FOR UNKNOWN INDICATION
     Dosage: AS PRESCRIBED AND IN A FORESEEABLE MANNER^
     Route: 048

REACTIONS (2)
  - BONE DISORDER [None]
  - FEMUR FRACTURE [None]
